FAERS Safety Report 26006685 (Version 1)
Quarter: 2025Q4

REPORT INFORMATION
  Report Type: Spontaneous
  Country: US (occurrence: None)
  Receive Date: 20251106
  Receipt Date: 20251106
  Transmission Date: 20260119
  Serious: Yes (Hospitalization)
  Sender: FDA-CTU
  Company Number: None

PATIENT
  Sex: Male

DRUGS (2)
  1. ADYNOVATE [Suspect]
     Active Substance: ANTIHEMOPHILIC FACTOR, HUMAN RECOMBINANT
     Indication: Factor VIII deficiency
     Dosage: 500 IU INTERNATIONAL UNIT(S)  : EVERY 5 DAYS INTRAVENOUS DRIP?
     Route: 041
     Dates: start: 20221228
  2. TRIUMEQ [Concomitant]
     Active Substance: ABACAVIR SULFATE\DOLUTEGRAVIR SODIUM\LAMIVUDINE

REACTIONS (1)
  - Joint microhaemorrhage [None]
